FAERS Safety Report 11750811 (Version 1)
Quarter: 2015Q4

REPORT INFORMATION
  Report Type: Spontaneous
  Country: GB (occurrence: GB)
  Receive Date: 20151118
  Receipt Date: 20151118
  Transmission Date: 20160304
  Serious: Yes (Other)
  Sender: FDA-Public Use
  Company Number: PHHY2015GB145441

PATIENT
  Age: 77 Year
  Sex: Male
  Weight: 85.27 kg

DRUGS (3)
  1. PRAVASTATIN [Suspect]
     Active Substance: PRAVASTATIN\PRAVASTATIN SODIUM
     Indication: ATRIAL FIBRILLATION
     Dosage: 10 MG, UNK
     Route: 048
     Dates: start: 2015, end: 2015
  2. BISOPROLOL [Concomitant]
     Active Substance: BISOPROLOL
     Indication: PRODUCT USED FOR UNKNOWN INDICATION
     Dosage: 2.5 MG, UNK
     Route: 065
  3. WARFARINE [Interacting]
     Active Substance: WARFARIN
     Indication: INTERNATIONAL NORMALISED RATIO INCREASED
     Route: 065
     Dates: start: 2011

REACTIONS (6)
  - Arthralgia [Unknown]
  - Product substitution issue [Unknown]
  - Myalgia [Unknown]
  - Drug interaction [Unknown]
  - Pain in extremity [Unknown]
  - International normalised ratio increased [Unknown]
